FAERS Safety Report 5211660-X (Version None)
Quarter: 2007Q1

REPORT INFORMATION
  Report Type: 
  Country: None (occurrence: None)
  Receive Date: 20070118
  Receipt Date: 20070109
  Transmission Date: 20070707
  Serious: Yes (Hospitalization)
  Sender: FDA-Public Use
  Company Number: 2007CG00054

PATIENT
  Age: 19028 Day
  Sex: Female

DRUGS (4)
  1. ZESTORETIC [Suspect]
     Dosage: 20 + 12.5 MG DAILY
     Route: 048
     Dates: start: 20020615, end: 20061004
  2. ZESTORETIC [Suspect]
     Dosage: 20 + 12.5 MG DAILY
     Route: 048
     Dates: start: 20061120, end: 20061122
  3. LISINOPRIL + HYDROCHLOROTHIAZIDE ARROW [Suspect]
     Route: 048
     Dates: start: 20061004, end: 20061118
  4. COAPROVEL [Suspect]
     Route: 048
     Dates: start: 20061122, end: 20061126

REACTIONS (3)
  - COUGH [None]
  - THROAT IRRITATION [None]
  - URTICARIA [None]
